FAERS Safety Report 4523825-0 (Version None)
Quarter: 2004Q4

REPORT INFORMATION
  Report Type: 
  Country: None (occurrence: None)
  Receive Date: 20041101
  Receipt Date: 20040816
  Transmission Date: 20050328
  Serious: Yes (Hospitalization)
  Sender: FDA-Public Use
  Company Number: US073623

PATIENT
  Age: 64 Year
  Sex: Female
  Weight: 38.5 kg

DRUGS (4)
  1. EPOGEN [Suspect]
     Indication: DIALYSIS
     Dosage: 20000 IU, 3 IN 1 WEEKS, IV
     Route: 042
     Dates: start: 20000624
  2. LOSARTAN POTASSIUM [Concomitant]
  3. AMLODIPINE BESYLATE [Concomitant]
  4. SODIUM FERRIC GLUCONATE COMPLEX [Concomitant]

REACTIONS (4)
  - ERYTHEMA INFECTIOSUM [None]
  - MYELODYSPLASTIC SYNDROME [None]
  - THERAPEUTIC RESPONSE DECREASED [None]
  - UPPER RESPIRATORY TRACT INFECTION [None]
